FAERS Safety Report 7137119-0 (Version None)
Quarter: 2010Q4

REPORT INFORMATION
  Report Type: 
  Country: None (occurrence: None)
  Receive Date: 20101206
  Receipt Date: 20091218
  Transmission Date: 20110411
  Serious: Yes (Death)
  Sender: FDA-Public Use
  Company Number: US-ACTELION-A-US2006-16166

PATIENT

DRUGS (10)
  1. ILOPROST INHALATION SOLUTION 5UG US [Suspect]
     Indication: PULMONARY HYPERTENSION
     Dosage: 5 UG, 6-9 X DAY
     Route: 055
     Dates: start: 20060629
  2. METOLAZONE [Suspect]
     Dosage: 5 MG, QOD
     Route: 048
  3. BENAZEPRIL [Suspect]
     Dosage: 100 MG, QD
     Route: 048
  4. SYNTHROID [Concomitant]
  5. WARFARIN SODIUM [Concomitant]
  6. FUROSEMIDE [Concomitant]
  7. DIGOXIN [Concomitant]
  8. K-DUR [Concomitant]
  9. MAGNESIUM OXIDE [Concomitant]
  10. IPRATROPIUM BROMIDE W/SALBUTAMOL [Concomitant]
     Dosage: UNK, UNK

REACTIONS (5)
  - COUGH [None]
  - DEATH [None]
  - HEADACHE [None]
  - NAUSEA [None]
  - OROPHARYNGEAL PAIN [None]
